FAERS Safety Report 10721696 (Version 2)
Quarter: 2015Q3

REPORT INFORMATION
  Report Type: Other
  Country: IE (occurrence: IE)
  Receive Date: 20150119
  Receipt Date: 20150810
  Transmission Date: 20151125
  Serious: Yes (Other)
  Sender: FDA-Public Use
  Company Number: IE-MYLANLABS-2015M1000640

PATIENT

DRUGS (6)
  1. METRONIDAZOLE. [Concomitant]
     Active Substance: METRONIDAZOLE
     Indication: HELICOBACTER INFECTION
     Dosage: UNK
  2. CLONFOLIC [Concomitant]
     Indication: PRODUCT USED FOR UNKNOWN INDICATION
     Dosage: (.4 MG, 1 IN 1 D)
  3. AMOXICILLIN. [Concomitant]
     Active Substance: AMOXICILLIN
     Indication: HELICOBACTER INFECTION
     Dosage: UNK
  4. GERTAC [Suspect]
     Active Substance: RANITIDINE HYDROCHLORIDE
     Indication: HELICOBACTER INFECTION
     Dosage: 150 MG, BID
     Route: 048
     Dates: start: 20141219
  5. PANTOPRAZOLE SODIUM. [Concomitant]
     Active Substance: PANTOPRAZOLE SODIUM
     Indication: HELICOBACTER INFECTION
     Dosage: UNK
  6. CLARITHROMYCIN. [Suspect]
     Active Substance: CLARITHROMYCIN
     Indication: HELICOBACTER INFECTION
     Dosage: UNK

REACTIONS (4)
  - Palpitations [Unknown]
  - Abdominal discomfort [Unknown]
  - Dizziness [Unknown]
  - Abdominal pain upper [Unknown]
